FAERS Safety Report 15266211 (Version 1)
Quarter: 2018Q3

REPORT INFORMATION
  Report Type: Spontaneous
  Country: US (occurrence: US)
  Receive Date: 20180724
  Receipt Date: 20180724
  Transmission Date: 20181010
  Serious: Yes (Hospitalization)
  Sender: FDA-Public Use
  Company Number: None

PATIENT
  Sex: Male

DRUGS (4)
  1. STELARA [Suspect]
     Active Substance: USTEKINUMAB
     Indication: CROHN^S DISEASE
     Dosage: ?          OTHER FREQUENCY:Q4W;?
     Route: 058
     Dates: start: 20170126
  2. PREDNISONE, VIBRAMYCIN [Concomitant]
  3. IMURAN [Concomitant]
     Active Substance: AZATHIOPRINE
  4. MONTELUKAST, PRILOSEC [Concomitant]

REACTIONS (1)
  - Surgery [None]
